FAERS Safety Report 26101635 (Version 2)
Quarter: 2025Q4

REPORT INFORMATION
  Report Type: Report from Study
  Country: US (occurrence: US)
  Receive Date: 20251128
  Receipt Date: 20251219
  Transmission Date: 20260118
  Serious: Yes (Hospitalization, Other)
  Sender: MERCK SHARP & DOHME LLC
  Company Number: US-009507513-2350159

PATIENT
  Sex: Female
  Weight: 63.503 kg

DRUGS (8)
  1. WINREVAIR [Suspect]
     Active Substance: SOTATERCEPT-CSRK
     Indication: Pulmonary arterial hypertension
     Route: 058
     Dates: start: 202510, end: 20251112
  2. WINREVAIR [Suspect]
     Active Substance: SOTATERCEPT-CSRK
  3. WINREVAIR [Suspect]
     Active Substance: SOTATERCEPT-CSRK
  4. WINREVAIR [Suspect]
     Active Substance: SOTATERCEPT-CSRK
  5. MACITENTAN\TADALAFIL [Concomitant]
     Active Substance: MACITENTAN\TADALAFIL
  6. TYVASO DPI [Suspect]
     Active Substance: TREPROSTINIL
     Indication: Pulmonary arterial hypertension
     Dosage: 80 ?G (48 ?G+32 ?G), FOUR TIMES A DAY (QID), STRENGTH 48 UG, 32 UG
     Route: 055
     Dates: start: 2025
  7. TYVASO DPI [Suspect]
     Active Substance: TREPROSTINIL
     Indication: Pulmonary arterial hypertension
     Route: 055
     Dates: start: 202510
  8. ELIQUIS [Suspect]
     Active Substance: APIXABAN
     Indication: Deep vein thrombosis
     Dates: start: 20251110, end: 20251118

REACTIONS (16)
  - Anaemia [Unknown]
  - Pulmonary embolism [Unknown]
  - Thrombocytopenia [Recovered/Resolved]
  - Deep vein thrombosis [Unknown]
  - Dyspnoea exertional [Unknown]
  - Leukopenia [Unknown]
  - Hypotension [Unknown]
  - Hypokalaemia [Unknown]
  - Faecal occult blood positive [Unknown]
  - Oxygen saturation decreased [Unknown]
  - Glomerular filtration rate abnormal [Unknown]
  - Protein total abnormal [Unknown]
  - Blood urea abnormal [Unknown]
  - Atelectasis [Unknown]
  - Gastrointestinal haemorrhage [Unknown]
  - Neutropenia [Unknown]

NARRATIVE: CASE EVENT DATE: 20250101
